FAERS Safety Report 5820174-5 (Version None)
Quarter: 2008Q3

REPORT INFORMATION
  Report Type: 
  Country: None (occurrence: None)
  Receive Date: 20080724
  Receipt Date: 20080716
  Transmission Date: 20090109
  Serious: Yes (Hospitalization, Other)
  Sender: FDA-Public Use
  Company Number: PHBS2008PT05153

PATIENT
  Age: 71 Year
  Sex: Female

DRUGS (2)
  1. VALSARTAN [Suspect]
     Indication: HYPERTENSION
  2. HYDROCHLOROTHIAZIDE [Suspect]
     Indication: HYPERTENSION

REACTIONS (7)
  - 5-HYDROXYINDOLACETIC ACID IN URINE INCREASED [None]
  - COLECTOMY [None]
  - COMPUTERISED TOMOGRAM ABNORMAL [None]
  - DIARRHOEA [None]
  - FLUSHING [None]
  - HYPERSENSITIVITY [None]
  - NEUROENDOCRINE TUMOUR [None]
